FAERS Safety Report 24691327 (Version 1)
Quarter: 2024Q4

REPORT INFORMATION
  Report Type: Spontaneous
  Country: CA (occurrence: CA)
  Receive Date: 20241203
  Receipt Date: 20241203
  Transmission Date: 20250114
  Serious: Yes (Hospitalization)
  Sender: BAXTER
  Company Number: CA-BAXTER-2024BAX028660

PATIENT
  Age: 10 Year
  Sex: Female
  Weight: 37 kg

DRUGS (14)
  1. DOXORUBICIN [Suspect]
     Active Substance: DOXORUBICIN
     Indication: Undifferentiated sarcoma
     Dosage: UNK, DOSAGE FORM: INJECTION
     Route: 065
  2. IFOSFAMIDE [Suspect]
     Active Substance: IFOSFAMIDE
     Indication: Undifferentiated sarcoma
     Dosage: UNK, DOSAGE FORM: POWDER FOR SOLUTION INTRAVENOUS
     Route: 065
  3. MESNA [Suspect]
     Active Substance: MESNA
     Indication: Undifferentiated sarcoma
     Dosage: UNK, DOSAGE FORM: NOT SPECIFIED
     Route: 065
  4. DEXRAZOXANE [Suspect]
     Active Substance: DEXRAZOXANE
     Indication: Undifferentiated sarcoma
     Dosage: UNK, DOSAGE FORM: POWDER FOR SOLUTION INTRAVENOUS, SINGLE USE VIAL
     Route: 065
  5. DEXAMETHASONE [Concomitant]
     Active Substance: DEXAMETHASONE
     Dosage: UNK, DOSAGE FORM: NOT SPECIFIED
     Route: 065
  6. DIMENHYDRINATE [Concomitant]
     Active Substance: DIMENHYDRINATE
     Dosage: UNK, DOSAGE FORM: NOT SPECIFIED
     Route: 065
  7. GRANISETRON [Concomitant]
     Active Substance: GRANISETRON
     Dosage: UNK, DOSAGE FORM: NOT SPECIFIED
     Route: 065
  8. LANSOPRAZOLE [Concomitant]
     Active Substance: LANSOPRAZOLE
     Dosage: UNK, DOSAGE FORM: CAPSULE, DELAYED RELEASE
     Route: 065
  9. LORAZEPAM [Concomitant]
     Active Substance: LORAZEPAM
     Dosage: UNK, DOSAGE FORM: NOT SPECIFIED
     Route: 065
  10. OLANZAPINE [Concomitant]
     Active Substance: OLANZAPINE
     Dosage: UNK, DOSAGE FORM: NOT SPECIFIED
     Route: 065
  11. ONDANSETRON [Concomitant]
     Active Substance: ONDANSETRON
     Dosage: UNK, DOSAGE FORM: NOT SPECIFIED
     Route: 065
  12. POLYETHYLENE GLYCOL [Concomitant]
     Active Substance: POLYETHYLENE GLYCOL
     Dosage: UNK, DOSAGE FORM: NOT SPECIFIED
     Route: 065
  13. SENNOSIDES [Concomitant]
     Active Substance: SENNOSIDES
     Dosage: UNK, DOSAGE FORM: NOT SPECIFIED
     Route: 065
  14. SULFAMETHOXAZOLE\TRIMETHOPRIM [Concomitant]
     Active Substance: SULFAMETHOXAZOLE\TRIMETHOPRIM
     Dosage: UNK, DOSAGE FORM: NOT SPECIFIED
     Route: 065

REACTIONS (1)
  - Febrile neutropenia [Recovered/Resolved]
